FAERS Safety Report 5130116-6 (Version None)
Quarter: 2006Q4

REPORT INFORMATION
  Report Type: 
  Country: None (occurrence: None)
  Receive Date: 20061013
  Receipt Date: 20060929
  Transmission Date: 20070319
  Serious: Yes (Other)
  Sender: FDA-Public Use
  Company Number: FR200610000374

PATIENT
  Age: 70 Year
  Sex: Female

DRUGS (1)
  1. XIGRIS [Suspect]
     Dosage: 24 UG INTRAVENOUS
     Route: 042
     Dates: start: 20060927, end: 20060928

REACTIONS (2)
  - HEPATIC FAILURE [None]
  - THROMBOCYTOPENIA [None]
